FAERS Safety Report 8647072 (Version 2)
Quarter: 2012Q4

REPORT INFORMATION
  Report Type: Report from Study
  Country: FR (occurrence: FR)
  Receive Date: 20120703
  Receipt Date: 20121212
  Transmission Date: 20130627
  Serious: Yes (Hospitalization, Other)
  Sender: FDA-Public Use
  Company Number: FR-ACTELION-A-CH2011-57521

PATIENT
  Age: 9 Month
  Sex: Female
  Weight: 10.3 kg

DRUGS (9)
  1. ZAVESCA [Suspect]
     Indication: NIEMANN-PICK DISEASE
     Dosage: 50 mg, tid
     Route: 048
     Dates: start: 20100301
  2. ZAVESCA [Suspect]
     Dosage: 50 mg, bid
     Route: 048
     Dates: start: 201201, end: 201203
  3. ZAVESCA [Suspect]
     Dosage: 50 mg, tid
     Route: 048
     Dates: start: 201203
  4. ZAVESCA [Suspect]
     Dosage: 50 mg, bid
     Route: 048
  5. VITAMINS [Concomitant]
  6. PARACETAMOL [Concomitant]
  7. MORPHINE [Concomitant]
  8. LAROXYL [Concomitant]
  9. VITAMIN K1 [Concomitant]

REACTIONS (12)
  - Diarrhoea [Not Recovered/Not Resolved]
  - Growth retardation [Not Recovered/Not Resolved]
  - Bronchiolitis [Recovered/Resolved]
  - Interstitial lung disease [Recovered/Resolved]
  - General physical health deterioration [Recovered/Resolved]
  - Nephrolithiasis [Not Recovered/Not Resolved]
  - Neuropathy peripheral [Not Recovered/Not Resolved]
  - Thrombocytopenia [Recovered/Resolved]
  - Pain [Recovered/Resolved]
  - Tremor [Not Recovered/Not Resolved]
  - Convulsion [Not Recovered/Not Resolved]
  - Epistaxis [Recovered/Resolved]
